FAERS Safety Report 8234063-2 (Version None)
Quarter: 2012Q1

REPORT INFORMATION
  Report Type: 
  Country: None (occurrence: None)
  Receive Date: 20120326
  Receipt Date: 20120326
  Transmission Date: 20120608
  Serious: Yes (Hospitalization)
  Sender: FDA-Public Use
  Company Number: None

PATIENT
  Age: 52 Year
  Sex: Male
  Weight: 744.79 kg

DRUGS (2)
  1. PIPERACILLIN AND TAZOBACTAM [Suspect]
     Indication: OSTEOMYELITIS
     Dosage: 4.5 GM
     Route: 041
     Dates: start: 20120305, end: 20120322
  2. PIPERACILLIN AND TAZOBACTAM [Suspect]

REACTIONS (6)
  - FEBRILE NEUTROPENIA [None]
  - RASH [None]
  - LIQUID PRODUCT PHYSICAL ISSUE [None]
  - PRODUCT DEPOSIT [None]
  - EOSINOPHILIA [None]
  - TRANSAMINASES INCREASED [None]
